FAERS Safety Report 5427385-1 (Version None)
Quarter: 2007Q3

REPORT INFORMATION
  Report Type: 
  Country: None (occurrence: None)
  Receive Date: 20070828
  Receipt Date: 20070817
  Transmission Date: 20080115
  Serious: Yes (Death, Hospitalization)
  Sender: FDA-Public Use
  Company Number: BR-JNJFOC-20070803821

PATIENT
  Age: 13 Year
  Sex: Male

DRUGS (1)
  1. REMICADE [Suspect]
     Indication: GASTROINTESTINAL INFLAMMATION
     Route: 042

REACTIONS (4)
  - DEATH [None]
  - NERVOUS SYSTEM DISORDER [None]
  - PYREXIA [None]
  - SOMNOLENCE [None]
